FAERS Safety Report 6632365-4 (Version None)
Quarter: 2010Q1

REPORT INFORMATION
  Report Type: 
  Country: None (occurrence: None)
  Receive Date: 20100312
  Receipt Date: 20100304
  Transmission Date: 20100710
  Serious: Yes (Hospitalization, Disabling)
  Sender: FDA-Public Use
  Company Number: US-MERCK-0912USA00850

PATIENT
  Age: 48 Year
  Sex: Female

DRUGS (5)
  1. FOSAMAX [Suspect]
     Indication: OSTEOPOROSIS
     Route: 048
     Dates: start: 19910101, end: 20010101
  2. FOSAMAX [Suspect]
     Route: 048
     Dates: start: 20010101, end: 20080227
  3. FOSAMAX [Suspect]
     Route: 048
     Dates: start: 20000101, end: 20010101
  4. FLOVENT [Concomitant]
     Indication: ASTHMA
     Route: 065
     Dates: start: 20070101
  5. ALBUTEROL SULFATE [Concomitant]
     Indication: ASTHMA
     Route: 065
     Dates: start: 19790101

REACTIONS (24)
  - ANXIETY [None]
  - APPENDICITIS [None]
  - ASTHMA [None]
  - BLOOD GLUCOSE INCREASED [None]
  - CYST [None]
  - DIVERTICULITIS [None]
  - GASTROOESOPHAGEAL REFLUX DISEASE [None]
  - GINGIVAL DISORDER [None]
  - GINGIVAL PAIN [None]
  - HEADACHE [None]
  - HIATUS HERNIA [None]
  - HYPERSENSITIVITY [None]
  - JAW DISORDER [None]
  - LUNG NEOPLASM [None]
  - LYMPHADENOPATHY [None]
  - NASAL TURBINATE ABNORMALITY [None]
  - ORAL DISORDER [None]
  - ORAL TORUS [None]
  - OSTEONECROSIS [None]
  - OSTEOPENIA [None]
  - PNEUMONIA [None]
  - SINUSITIS [None]
  - TOOTH DISORDER [None]
  - TOOTH FRACTURE [None]
